FAERS Safety Report 8434820-3 (Version None)
Quarter: 2012Q2

REPORT INFORMATION
  Report Type: 
  Country: None (occurrence: None)
  Receive Date: 20120614
  Receipt Date: 20120606
  Transmission Date: 20120825
  Serious: Yes (Hospitalization)
  Sender: FDA-Public Use
  Company Number: US-BAYER-201042062NA

PATIENT
  Age: 40 Year
  Sex: Female
  Weight: 86.168 kg

DRUGS (13)
  1. SULFAMETHOXAZOLE AND TRIMETHOPRIM [Concomitant]
     Dosage: 1 TABLET/ BID
     Dates: start: 20100203
  2. HYDROCODONE BITARTRATE + ACETAMINOPHEN [Concomitant]
     Dosage: 1 TABLET/ AS NECESSARY
     Dates: start: 20100203
  3. ATROVENT [Concomitant]
     Indication: WHEEZING
     Dosage: 2 PUFF(S), QID
     Dates: start: 20091109
  4. ALBUTEROL SULATE [Concomitant]
     Indication: COUGH
     Dosage: 1 NEB (NEBULIZER)/ AS NEEDED
  5. DROSPIRENONE AND ETHINYL ESTRADIOL [Suspect]
     Dosage: UNK UNK, QD
     Route: 048
     Dates: start: 20080901, end: 20100201
  6. LISINOPRILHYDROCHLOROTHIAZIDE RATIOPHARM [Concomitant]
     Dosage: 1 TABLET/ DAILY
     Dates: start: 20091204, end: 20100202
  7. PROAIR HFA [Concomitant]
     Indication: WHEEZING
     Dosage: 2 PUFF(S), QID
     Dates: start: 20091109
  8. PRILOSEC [Concomitant]
     Dosage: 20 MG, BID
     Dates: start: 20091221
  9. DROSPIRENONE AND ETHINYL ESTRADIOL [Suspect]
     Route: 048
     Dates: start: 20060701
  10. PROPOXYPHENE NAPSYLATE W/ ACETAMINOPHEN [Concomitant]
     Dosage: 1 TABLET Q4HR
     Dates: start: 20100202
  11. AZITHROMYCIN [Concomitant]
     Dosage: 250 MG, UNK
     Dates: start: 20091109
  12. YASMIN [Suspect]
     Indication: ORAL CONTRACEPTION
     Dosage: UNK
     Dates: start: 20060701, end: 20061101
  13. METHYLPREDNISOLONE [Concomitant]
     Dosage: 4 MG, UNK
     Dates: start: 20091109

REACTIONS (1)
  - DEEP VEIN THROMBOSIS [None]
